FAERS Safety Report 5835946-0 (Version None)
Quarter: 2008Q3

REPORT INFORMATION
  Report Type: 
  Country: None (occurrence: None)
  Receive Date: 20080805
  Receipt Date: 20080721
  Transmission Date: 20090109
  Serious: Yes (Life-Threatening, Hospitalization, Other)
  Sender: FDA-Public Use
  Company Number: 2008S1012815

PATIENT
  Age: 87 Year
  Sex: Female

DRUGS (9)
  1. ERYTHROMYCIN [Suspect]
     Indication: SKIN ULCER
     Dosage: 500 MG; 3 TIMES A DAY;
  2. AMITRIPTYLINE HYDROCHLORIDE [Suspect]
     Indication: DRUG USE FOR UNKNOWN INDICATION
     Dosage: 25 MG; DAILY;
     Dates: start: 20080620, end: 20080628
  3. NITROFURANTOIN [Suspect]
     Indication: DRUG USE FOR UNKNOWN INDICATION
  4. ARTHROTEC /00372302/ (DICLOFENAC SODIUM) [Concomitant]
     Indication: DRUG USE FOR UNKNOWN INDICATION
     Dates: start: 20080609, end: 20080628
  5. ASPIRIN [Concomitant]
  6. BETAMETHASONE VALERATE [Concomitant]
  7. CO-CODAMOL [Concomitant]
  8. FUROSEMIDE [Concomitant]
  9. LEVOTHYROXINE SODIUM [Concomitant]

REACTIONS (3)
  - HAEMATURIA [None]
  - PURPURA [None]
  - THROMBOCYTOPENIA [None]
